FAERS Safety Report 7171134-6 (Version None)
Quarter: 2010Q4

REPORT INFORMATION
  Report Type: 
  Country: None (occurrence: None)
  Receive Date: 20101217
  Receipt Date: 20101207
  Transmission Date: 20110411
  Serious: Yes (Hospitalization)
  Sender: FDA-Public Use
  Company Number: FR-NAPPMUNDI-MAG-2010-0001350

PATIENT
  Age: 64 Year
  Sex: Female

DRUGS (6)
  1. OXYCONTIN [Suspect]
     Indication: NEURALGIA
     Dosage: UNK
     Route: 065
     Dates: start: 20091016
  2. BOSUTINIB [Suspect]
     Indication: NEOPLASM
     Dosage: UNK UNK, DAILY
     Route: 048
     Dates: start: 20100907
  3. CAPECITABINE [Suspect]
     Indication: NEOPLASM
     Dosage: 2000  MG/M2 FOR 14 DAYS EVERY 3 WEEKS
     Route: 048
     Dates: start: 20100907
  4. VOGALENE [Concomitant]
     Indication: PROPHYLAXIS OF NAUSEA AND VOMITING
     Dosage: UNK
     Route: 065
     Dates: start: 20100420
  5. DEXERYL                            /00557601/ [Concomitant]
     Indication: PALMAR-PLANTAR ERYTHRODYSAESTHESIA SYNDROME
     Dosage: UNK
     Route: 065
     Dates: start: 20100526
  6. BIAFINE                            /00834001/ [Concomitant]
     Indication: PALMAR-PLANTAR ERYTHRODYSAESTHESIA SYNDROME
     Dosage: UNK
     Route: 065
     Dates: start: 20100526

REACTIONS (1)
  - GASTROINTESTINAL OBSTRUCTION [None]
